FAERS Safety Report 7346276-2 (Version None)
Quarter: 2011Q1

REPORT INFORMATION
  Report Type: 
  Country: None (occurrence: None)
  Receive Date: 20110311
  Receipt Date: 20110308
  Transmission Date: 20110831
  Serious: Yes (Hospitalization, Other)
  Sender: FDA-Public Use
  Company Number: US-PFIZER INC-2011050425

PATIENT
  Sex: Male
  Weight: 63.039 kg

DRUGS (9)
  1. KLOR-CON [Concomitant]
  2. FAMOTIDINE [Concomitant]
  3. ARICEPT [Concomitant]
  4. TORISEL [Suspect]
     Indication: PROSTATE CANCER
     Dosage: 25 MG, ONCE IN A WEEK
     Route: 042
     Dates: start: 20110201, end: 20110301
  5. NAMENDA [Concomitant]
  6. COLACE [Concomitant]
  7. LEXAPRO [Concomitant]
  8. SIMVASTATIN [Concomitant]
  9. TRAZODONE [Concomitant]

REACTIONS (1)
  - PNEUMONIA [None]
